FAERS Safety Report 7472515-3 (Version None)
Quarter: 2011Q2

REPORT INFORMATION
  Report Type: 
  Country: None (occurrence: None)
  Receive Date: 20110511
  Receipt Date: 20110502
  Transmission Date: 20111010
  Serious: Yes (Hospitalization, Disabling)
  Sender: FDA-Public Use
  Company Number: FR-BAXTER-2011BH015445

PATIENT
  Age: 17 Year
  Sex: Female

DRUGS (4)
  1. MITOGUAZONE [Suspect]
     Indication: HODGKIN'S DISEASE REFRACTORY
     Route: 065
  2. NAVELBINE [Suspect]
     Indication: HODGKIN'S DISEASE REFRACTORY
     Route: 065
  3. ETOPOSIDE [Suspect]
     Indication: HODGKIN'S DISEASE REFRACTORY
     Route: 065
  4. IFOSFAMIDE [Suspect]
     Indication: HODGKIN'S DISEASE REFRACTORY
     Route: 065

REACTIONS (5)
  - OEDEMA PERIPHERAL [None]
  - PANNICULITIS [None]
  - MUCOSAL INFLAMMATION [None]
  - BLISTER [None]
  - RASH MACULAR [None]
